FAERS Safety Report 6667351-1 (Version None)
Quarter: 2010Q1

REPORT INFORMATION
  Report Type: 
  Country: None (occurrence: None)
  Receive Date: 20100318
  Receipt Date: 20100311
  Transmission Date: 20100710
  Serious: Yes (Death, Hospitalization)
  Sender: FDA-Public Use
  Company Number: 2010022241

PATIENT
  Sex: Female
  Weight: 49.8957 kg

DRUGS (22)
  1. ZEMAIRA [Suspect]
     Dosage: 125 MG, 125 MG WEEKLY INTRAVENOUS, 60 MG/KG INTRAVENOUS, INTRAVENOUS
     Route: 042
     Dates: start: 20041111
  2. ZEMAIRA [Suspect]
     Dosage: 125 MG, 125 MG WEEKLY INTRAVENOUS, 60 MG/KG INTRAVENOUS, INTRAVENOUS
     Route: 042
     Dates: start: 20091028
  3. PREDNISONE TAB [Concomitant]
  4. OSCAL (CALCIUM CARBONATE) [Concomitant]
  5. ZYRTEC [Concomitant]
  6. LORAZEPAM [Concomitant]
  7. ALBUTEROL [Concomitant]
  8. FLONASE [Concomitant]
  9. SPIRONOLACTONE [Concomitant]
  10. LEVOTHYROXINE SODIUM [Concomitant]
  11. SPIRIVA (TIOTROPIUM BROMDE) [Concomitant]
  12. MYCELEX [Concomitant]
  13. ADVAIR HFA [Concomitant]
  14. IBUPROFEN [Concomitant]
  15. TYLENOL [Concomitant]
  16. ROXICODONE [Concomitant]
  17. LATAIRIS (AMBRISENTAN) [Concomitant]
  18. SINGULAIR [Concomitant]
  19. ZEGERID (OMEPRAZOLE) [Concomitant]
  20. BACTRIM [Concomitant]
  21. REMODULIN (TREPROSTINOL) [Concomitant]
  22. REVATIO [Concomitant]

REACTIONS (1)
  - HOSPITALISATION [None]
